FAERS Safety Report 5220193-6 (Version None)
Quarter: 2006Q4

REPORT INFORMATION
  Report Type: 
  Country: None (occurrence: None)
  Receive Date: 20061201
  Receipt Date: 20060719
  Transmission Date: 20070319
  Serious: No
  Sender: FDA-Public Use
  Company Number: 2006PV017968

PATIENT
  Age: 44 Year
  Sex: Female
  Weight: 101.6057 kg

DRUGS (6)
  1. BYETTA [Suspect]
     Indication: DIABETES MELLITUS NON-INSULIN-DEPENDENT
     Dosage: 5 MCG;BID;SC
     Route: 058
     Dates: start: 20060623, end: 20060625
  2. METFORMIN HCL [Concomitant]
  3. PREVACID [Concomitant]
  4. ASPIRIN [Concomitant]
  5. DAYPRO [Concomitant]
  6. ALAVERT [Concomitant]

REACTIONS (8)
  - BLOOD GLUCOSE DECREASED [None]
  - FEELING ABNORMAL [None]
  - HEADACHE [None]
  - INJECTION SITE NODULE [None]
  - INJECTION SITE PAIN [None]
  - INJECTION SITE REACTION [None]
  - NAUSEA [None]
  - TREMOR [None]
